FAERS Safety Report 11276415 (Version 1)
Quarter: 2015Q3

REPORT INFORMATION
  Report Type: Spontaneous
  Country: US (occurrence: US)
  Receive Date: 20150716
  Receipt Date: 20150716
  Transmission Date: 20151125
  Serious: No
  Sender: FDA-Public Use
  Company Number: US-PFIZER INC-2015234023

PATIENT
  Age: 66 Year
  Sex: Female

DRUGS (1)
  1. NEURONTIN [Suspect]
     Active Substance: GABAPENTIN
     Dosage: UNK

REACTIONS (7)
  - Activities of daily living impaired [Unknown]
  - Drug intolerance [Unknown]
  - Headache [Unknown]
  - Burning sensation [Unknown]
  - Pain in extremity [Unknown]
  - Dizziness [Unknown]
  - Radicular pain [Unknown]
